FAERS Safety Report 21503064 (Version 1)
Quarter: 2022Q4

REPORT INFORMATION
  Report Type: Spontaneous
  Country: US (occurrence: US)
  Receive Date: 20221025
  Receipt Date: 20221025
  Transmission Date: 20230112
  Serious: No
  Sender: FDA-Public Use
  Company Number: US-MYLANLABS-2022M1111345

PATIENT
  Age: 65 Year
  Sex: Male
  Weight: 58.97 kg

DRUGS (1)
  1. ATORVASTATIN CALCIUM [Suspect]
     Active Substance: ATORVASTATIN CALCIUM
     Indication: Blood cholesterol
     Dosage: 20 MILLIGRAM
     Route: 065
     Dates: start: 202111

REACTIONS (2)
  - Product container seal issue [Recovering/Resolving]
  - Product package associated injury [Recovering/Resolving]

NARRATIVE: CASE EVENT DATE: 20220926
